FAERS Safety Report 13275916 (Version 1)
Quarter: 2017Q1

REPORT INFORMATION
  Report Type: Spontaneous
  Country: US (occurrence: US)
  Receive Date: 20170227
  Receipt Date: 20170227
  Transmission Date: 20170428
  Serious: Yes (Hospitalization)
  Sender: FDA-Public Use
  Company Number: None

PATIENT
  Age: 15 Year
  Sex: Female

DRUGS (8)
  1. LEVEMIR [Concomitant]
     Active Substance: INSULIN DETEMIR
  2. ALBUTEROL. [Concomitant]
     Active Substance: ALBUTEROL
  3. TOBRAMYCIN. [Suspect]
     Active Substance: TOBRAMYCIN
     Indication: CYSTIC FIBROSIS
     Dosage: ?          OTHER ROUTE:INHALE?
     Route: 055
  4. VITAMIN D [Concomitant]
     Active Substance: CHOLECALCIFEROL
  5. ENZYME DIGEST [Concomitant]
  6. HUMULIN NOS [Concomitant]
     Active Substance: INSULIN HUMAN
  7. SODIUM CHLORIDE. [Concomitant]
     Active Substance: SODIUM CHLORIDE
  8. HUMALOG [Concomitant]
     Active Substance: INSULIN LISPRO

REACTIONS (1)
  - Lung disorder [None]
